FAERS Safety Report 15944637 (Version 1)
Quarter: 2019Q1

REPORT INFORMATION
  Report Type: Spontaneous
  Country: US (occurrence: US)
  Receive Date: 20190211
  Receipt Date: 20190211
  Transmission Date: 20190417
  Serious: Yes (Death, Other)
  Sender: FDA-Public Use
  Company Number: US-ASTRAZENECA-2019SE22675

PATIENT
  Sex: Male

DRUGS (2)
  1. SPIRIVA [Concomitant]
     Active Substance: TIOTROPIUM BROMIDE MONOHYDRATE
     Dosage: UNKNOWN
     Route: 065
  2. SYMBICORT [Suspect]
     Active Substance: BUDESONIDE\FORMOTEROL FUMARATE DIHYDRATE
     Indication: CHRONIC OBSTRUCTIVE PULMONARY DISEASE
     Dosage: 160/4.5 MICROGRAM, TWO PUFFS TWICE DAILY
     Route: 055
     Dates: start: 2016

REACTIONS (7)
  - Metastases to liver [Unknown]
  - Weight decreased [Unknown]
  - Pain [Unknown]
  - Lung disorder [Unknown]
  - Prostate cancer [Fatal]
  - Dyspnoea [Fatal]
  - Metastases to bone [Unknown]
